FAERS Safety Report 8302314-1 (Version None)
Quarter: 2012Q2

REPORT INFORMATION
  Report Type: 
  Country: None (occurrence: None)
  Receive Date: 20120420
  Receipt Date: 20120411
  Transmission Date: 20120825
  Serious: Yes (Hospitalization, Other)
  Sender: FDA-Public Use
  Company Number: JP-ASTRAZENECA-2012SE22799

PATIENT
  Age: 91 Year
  Sex: Female
  Weight: 32.7 kg

DRUGS (7)
  1. CLARITHROMYCIN [Concomitant]
     Indication: BRONCHIECTASIS
     Route: 048
     Dates: start: 20040101
  2. SOLDEM 3A [Concomitant]
     Indication: ORAL ADMINISTRATION COMPLICATION
     Dates: start: 20120322, end: 20120327
  3. GASMOTIN [Concomitant]
     Indication: GASTROOESOPHAGEAL REFLUX DISEASE
     Route: 048
     Dates: start: 20120325
  4. SEROQUEL [Suspect]
     Indication: RESTLESSNESS
     Route: 048
     Dates: start: 20120325, end: 20120326
  5. LIASOPHIN [Concomitant]
     Indication: PYELONEPHRITIS
     Dates: start: 20120321, end: 20120326
  6. MAGMITT [Concomitant]
     Indication: CONSTIPATION
     Route: 048
     Dates: start: 20040101
  7. HALOPERIDOL [Concomitant]
     Indication: RESTLESSNESS
     Route: 041
     Dates: start: 20120324, end: 20120325

REACTIONS (10)
  - MENTAL STATUS CHANGES [None]
  - TACHYCARDIA [None]
  - AKINESIA [None]
  - BLOOD PRESSURE INADEQUATELY CONTROLLED [None]
  - HYPERHIDROSIS [None]
  - TREMOR [None]
  - MUTISM [None]
  - SALIVARY HYPERSECRETION [None]
  - MUSCLE RIGIDITY [None]
  - INCONTINENCE [None]
